FAERS Safety Report 4448814-6 (Version None)
Quarter: 2004Q3

REPORT INFORMATION
  Report Type: 
  Country: None (occurrence: None)
  Receive Date: 20040909
  Receipt Date: 20040825
  Transmission Date: 20050211
  Serious: Yes (Hospitalization)
  Sender: FDA-Public Use
  Company Number: 2004-DE-04503GD

PATIENT
  Age: 47 Year
  Sex: Male

DRUGS (4)
  1. CLONIDINE [Suspect]
     Indication: NERVE BLOCK
     Dosage: 30 MCG, IV
     Route: 042
  2. LIDOCAINE [Suspect]
     Indication: NERVE BLOCK
     Dosage: 150 MG, IV
     Route: 042
  3. NORTRIPTYLINE HCL [Suspect]
     Indication: PAIN
     Dosage: 100 MG
  4. GABAPENTIN [Concomitant]

REACTIONS (6)
  - AMNESIA [None]
  - COMPLEX PARTIAL SEIZURES [None]
  - DEPRESSED LEVEL OF CONSCIOUSNESS [None]
  - HYPOAESTHESIA [None]
  - PAIN [None]
  - POSTICTAL STATE [None]
